FAERS Safety Report 16916344 (Version 1)
Quarter: 2019Q4

REPORT INFORMATION
  Report Type: Spontaneous
  Country: FR (occurrence: FR)
  Receive Date: 20191014
  Receipt Date: 20191014
  Transmission Date: 20200122
  Serious: Yes (Death, Hospitalization)
  Sender: FDA-Public Use
  Company Number: FR-ALLERGAN-1941166US

PATIENT
  Sex: Female

DRUGS (2)
  1. URSODEOXYCHOLIC ACID UNK [Suspect]
     Active Substance: URSODIOL
     Indication: CHOLESTASIS
     Dosage: 10 MG/KG, QD
     Route: 065
  2. CELECOXIB. [Suspect]
     Active Substance: CELECOXIB
     Indication: BACK PAIN
     Dosage: 200 MG, SINGLE
     Route: 065
     Dates: start: 20170406

REACTIONS (9)
  - Febrile bone marrow aplasia [Fatal]
  - Pruritus [Recovered/Resolved]
  - Weight decreased [Recovered/Resolved]
  - Drug ineffective [Unknown]
  - Decreased appetite [Recovered/Resolved]
  - Systemic inflammatory response syndrome [Fatal]
  - Hepatitis cholestatic [Fatal]
  - Jaundice [Recovered/Resolved]
  - Hyperbilirubinaemia [Not Recovered/Not Resolved]
